FAERS Safety Report 20834041 (Version 1)
Quarter: 2022Q2

REPORT INFORMATION
  Report Type: Spontaneous
  Country: US (occurrence: US)
  Receive Date: 20220516
  Receipt Date: 20220516
  Transmission Date: 20220720
  Serious: No
  Sender: FDA-Public Use
  Company Number: US-TAKEDA-2022TUS032401

PATIENT
  Sex: Male
  Weight: 93 kg

DRUGS (4)
  1. VYVANSE [Suspect]
     Active Substance: LISDEXAMFETAMINE DIMESYLATE
     Indication: Attention deficit hyperactivity disorder
     Route: 065
  2. DEXEDRINE [Concomitant]
     Active Substance: DEXTROAMPHETAMINE SULFATE
     Indication: Attention deficit hyperactivity disorder
     Dosage: 40 MILLIGRAM, QD
  3. DUTASTERIDE [Concomitant]
     Active Substance: DUTASTERIDE
     Indication: Dry eye
  4. DUTASTERIDE [Concomitant]
     Active Substance: DUTASTERIDE
     Indication: Vision blurred

REACTIONS (3)
  - Vision blurred [Unknown]
  - Blood pressure increased [Unknown]
  - Wrong technique in product usage process [Unknown]
